FAERS Safety Report 17816715 (Version 1)
Quarter: 2020Q2

REPORT INFORMATION
  Report Type: Spontaneous
  Country: GB (occurrence: GB)
  Receive Date: 20200522
  Receipt Date: 20200522
  Transmission Date: 20200714
  Serious: Yes (Disabling, Other)
  Sender: FDA-Public Use
  Company Number: GB-PFIZER INC-2020199364

PATIENT
  Age: 43 Year
  Sex: Female
  Weight: 68.03 kg

DRUGS (10)
  1. INDIVINA [Suspect]
     Active Substance: ESTRADIOL VALERATE\MEDROXYPROGESTERONE ACETATE
     Indication: MENOPAUSAL SYMPTOMS
     Dosage: UNK
     Dates: start: 20160901
  2. PRUCALOPRIDE [Concomitant]
     Active Substance: PRUCALOPRIDE
     Dosage: UNK
  3. PROVERA [Suspect]
     Active Substance: MEDROXYPROGESTERONE ACETATE
     Indication: MENOPAUSAL SYMPTOMS
     Dosage: UNK
     Dates: end: 20191201
  4. VENLALIC [Concomitant]
     Active Substance: VENLAFAXINE HYDROCHLORIDE
     Dosage: UNK
  5. PIRITON [Concomitant]
     Active Substance: CHLORPHENIRAMINE MALEATE
     Dosage: UNK
  6. ESTRADIOL. [Concomitant]
     Active Substance: ESTRADIOL
     Dosage: UNK
  7. PHENERGAN [Concomitant]
     Active Substance: PROMETHAZINE HYDROCHLORIDE
     Dosage: UNK
  8. FEXOFENADINE HYDROCHLORIDE. [Concomitant]
     Active Substance: FEXOFENADINE HYDROCHLORIDE
     Dosage: UNK
  9. KLIOFEM [Suspect]
     Active Substance: ESTRADIOL\NORETHINDRONE ACETATE
     Indication: MENOPAUSAL SYMPTOMS
     Dosage: UNK
  10. PANTOPRAZOLE [Concomitant]
     Active Substance: PANTOPRAZOLE
     Dosage: UNK

REACTIONS (10)
  - Pruritus [Unknown]
  - Post viral fatigue syndrome [Unknown]
  - Dyspnoea [Unknown]
  - Swelling [Unknown]
  - Condition aggravated [Unknown]
  - Headache [Unknown]
  - Inflammation [Unknown]
  - Palpitations [Unknown]
  - Hypersensitivity [Recovered/Resolved]
  - Fatigue [Unknown]

NARRATIVE: CASE EVENT DATE: 20170901
